FAERS Safety Report 5123506-9 (Version None)
Quarter: 2006Q4

REPORT INFORMATION
  Report Type: 
  Country: None (occurrence: None)
  Receive Date: 20061009
  Receipt Date: 20060317
  Transmission Date: 20070319
  Serious: Yes (Other)
  Sender: FDA-Public Use
  Company Number: PHEH2006US03723

PATIENT
  Age: 66 Year
  Sex: Female

DRUGS (4)
  1. ZOMETA [Suspect]
     Indication: BREAST CANCER METASTATIC
     Dosage: 4 MG, QMO
     Route: 042
     Dates: start: 20020617, end: 20050831
  2. FEMARA [Concomitant]
     Dosage: 2.5 MG, DAILY
     Dates: start: 20020218
  3. CYTOXAN [Concomitant]
     Dosage: 600 MG/M2, X 6 CYCLES
  4. CYTOXAN [Concomitant]
     Dosage: 600 MG/M2, X 6 CYCLES

REACTIONS (25)
  - ACTINOMYCOSIS [None]
  - ALVEOLOPLASTY [None]
  - BONE DISORDER [None]
  - BONE FRAGMENTATION [None]
  - BONE OPERATION [None]
  - DEFORMITY [None]
  - DENTAL CARIES [None]
  - DENTAL OPERATION [None]
  - DYSGEUSIA [None]
  - EATING DISORDER [None]
  - ERYTHEMA [None]
  - FISTULA [None]
  - INFECTION [None]
  - INJURY [None]
  - LOCAL SWELLING [None]
  - OSTEOMYELITIS [None]
  - OSTEOMYELITIS CHRONIC [None]
  - OSTEONECROSIS [None]
  - PAIN [None]
  - PHYSICAL DISABILITY [None]
  - POST PROCEDURAL DISCHARGE [None]
  - PURULENT DISCHARGE [None]
  - SOFT TISSUE INFECTION [None]
  - STAPHYLOCOCCAL INFECTION [None]
  - TOOTH EXTRACTION [None]
